FAERS Safety Report 10390158 (Version 4)
Quarter: 2015Q1

REPORT INFORMATION
  Report Type: Spontaneous
  Country: NP (occurrence: NP)
  Receive Date: 20140818
  Receipt Date: 20150107
  Transmission Date: 20150720
  Serious: Yes (Death, Hospitalization)
  Sender: FDA-Public Use
  Company Number: NP-PFIZER INC-2014226293

PATIENT
  Age: 13 Year
  Sex: Female

DRUGS (7)
  1. DEXAMETHASONE. [Suspect]
     Active Substance: DEXAMETHASONE
     Indication: APLASTIC ANAEMIA
     Dosage: 8 MG, 1X/DAY
     Route: 042
  2. ATGAM [Suspect]
     Active Substance: EQUINE THYMOCYTE IMMUNE GLOBULIN
     Indication: APLASTIC ANAEMIA
     Dosage: 40 MG/KG, 1X/DAY
     Route: 042
     Dates: start: 201401, end: 2014
  3. HYDROCORTISONE. [Concomitant]
     Active Substance: HYDROCORTISONE
     Dosage: 100 MG, UNK
  4. AVIL [Suspect]
     Active Substance: PHENIRAMINE
     Indication: APLASTIC ANAEMIA
  5. PARACETAMOL [Suspect]
     Active Substance: ACETAMINOPHEN
     Indication: APLASTIC ANAEMIA
  6. PREDNISOLON [Suspect]
     Active Substance: PREDNISOLONE
     Indication: APLASTIC ANAEMIA
     Dosage: 0.5 MG TO 1 MG/KG
     Route: 048
  7. CYCLOSPORINE. [Suspect]
     Active Substance: CYCLOSPORINE
     Indication: APLASTIC ANAEMIA
     Dosage: UNK

REACTIONS (5)
  - Hypotension [Unknown]
  - Dyspnoea [Unknown]
  - Septic shock [Fatal]
  - Pneumonia fungal [Fatal]
  - Urticaria [Unknown]

NARRATIVE: CASE EVENT DATE: 201401
